FAERS Safety Report 23349464 (Version 3)
Quarter: 2024Q1

REPORT INFORMATION
  Report Type: Spontaneous
  Country: US (occurrence: US)
  Receive Date: 20231229
  Receipt Date: 20240111
  Transmission Date: 20240409
  Serious: Yes (Other)
  Sender: FDA-Public Use
  Company Number: US-BRISTOL-MYERS SQUIBB COMPANY-2023-187435

PATIENT
  Age: 57 Year
  Sex: Female

DRUGS (8)
  1. LENALIDOMIDE [Suspect]
     Active Substance: LENALIDOMIDE
     Indication: Plasma cell myeloma in remission
     Route: 048
  2. TYLENOL EXTRA STRENGTH [Concomitant]
     Active Substance: ACETAMINOPHEN
     Indication: Product used for unknown indication
  3. DEXAMETHASONE [Concomitant]
     Active Substance: DEXAMETHASONE
     Indication: Product used for unknown indication
  4. SENNA SMOOTH [Concomitant]
     Indication: Constipation
  5. IBUPROFEN [Concomitant]
     Active Substance: IBUPROFEN
     Indication: Product used for unknown indication
  6. CYCLOBENZAPRINE HYDROCHLORIDE [Concomitant]
     Active Substance: CYCLOBENZAPRINE HYDROCHLORIDE
     Indication: Product used for unknown indication
  7. DARZALEX FASPRO [Concomitant]
     Active Substance: DARATUMUMAB\HYALURONIDASE-FIHJ
     Indication: Product used for unknown indication
  8. ACYCLOVIR [Concomitant]
     Active Substance: ACYCLOVIR
     Indication: Product used for unknown indication

REACTIONS (12)
  - Neuropathy peripheral [Unknown]
  - Constipation [Unknown]
  - Diarrhoea [Unknown]
  - Weight decreased [Unknown]
  - Headache [Unknown]
  - Weight increased [Unknown]
  - Ocular discomfort [Unknown]
  - Lacrimation increased [Unknown]
  - Pruritus [Unknown]
  - Swelling face [Unknown]
  - Swelling [Unknown]
  - Eye swelling [Unknown]

NARRATIVE: CASE EVENT DATE: 20230101
